FAERS Safety Report 4783548-X (Version None)
Quarter: 2005Q3

REPORT INFORMATION
  Report Type: 
  Country: None (occurrence: None)
  Receive Date: 20050928
  Receipt Date: 20050919
  Transmission Date: 20060218
  Serious: Yes (Other)
  Sender: FDA-Public Use
  Company Number: DE-2005-015102

PATIENT
  Age: 37 Year
  Sex: Female
  Weight: 72 kg

DRUGS (4)
  1. MIRENA [Suspect]
     Indication: CONTRACEPTION
     Dosage: 20 UG/DAY, CONT, INTRA-UTERINE
     Route: 015
     Dates: start: 20040907
  2. PERAZINE (PERAZINE) [Concomitant]
  3. CARBAMAZEPINE [Concomitant]
  4. PAROXIDURA (PAROXETINE) [Concomitant]

REACTIONS (3)
  - ACTIVATED PROTEIN C RESISTANCE [None]
  - DEEP VEIN THROMBOSIS [None]
  - PROTEIN C DEFICIENCY [None]
